FAERS Safety Report 10685277 (Version 1)
Quarter: 2014Q4

REPORT INFORMATION
  Report Type: Spontaneous
  Country: ES (occurrence: ES)
  Receive Date: 20141231
  Receipt Date: 20141231
  Transmission Date: 20150529
  Serious: Yes (Hospitalization)
  Sender: FDA-Public Use
  Company Number: ES-SA-2014SA177034

PATIENT
  Age: 89 Year
  Sex: Male

DRUGS (5)
  1. SINTROM [Suspect]
     Active Substance: ACENOCOUMAROL
     Indication: ARRHYTHMIA
     Route: 048
     Dates: start: 20141118
  2. PARACETAMOL [Suspect]
     Active Substance: ACETAMINOPHEN
     Indication: ARTHRALGIA
     Dosage: DE 29/11/2014 A 05/12/2014: PARACETAMOL 1G/DIA. DE 05/12/2014 A 12/12/14 PARACETAMOL 1G/8H
     Route: 048
     Dates: start: 20141129, end: 20141212
  3. CLEXANE [Suspect]
     Active Substance: ENOXAPARIN SODIUM
     Indication: ARRHYTHMIA
     Route: 065
     Dates: start: 20141020
  4. ENANTYUM [Suspect]
     Active Substance: DEXKETOPROFEN TROMETAMOL
     Indication: ARTHRALGIA
     Route: 048
     Dates: start: 20141129, end: 20141204
  5. DOLOCATIL [Suspect]
     Active Substance: ACETAMINOPHEN
     Indication: ARTHRALGIA
     Route: 048
     Dates: start: 20141212

REACTIONS (4)
  - Upper gastrointestinal haemorrhage [Not Recovered/Not Resolved]
  - Hypokalaemia [Unknown]
  - Gastroduodenal ulcer [Not Recovered/Not Resolved]
  - Haemoglobin decreased [Not Recovered/Not Resolved]

NARRATIVE: CASE EVENT DATE: 201412
